FAERS Safety Report 4611429-0 (Version None)
Quarter: 2005Q1

REPORT INFORMATION
  Report Type: 
  Country: None (occurrence: None)
  Receive Date: 20050315
  Receipt Date: 20050315
  Transmission Date: 20050727
  Serious: Yes (Hospitalization)
  Sender: FDA-Public Use
  Company Number: None

PATIENT
  Age: 84 Year
  Sex: Female
  Weight: 71.6683 kg

DRUGS (6)
  1. MACUGEN [Suspect]
     Indication: MACULAR DEGENERATION
     Dosage: 0.3MG    ONCE    OTHER
     Route: 050
     Dates: start: 20050221, end: 20050221
  2. NEXIUM [Concomitant]
  3. SYNTHROID [Concomitant]
  4. ALLEGRA [Concomitant]
  5. VISUDYNE [Concomitant]
  6. KENOLOG [Concomitant]

REACTIONS (4)
  - DYSPNOEA [None]
  - POST PROCEDURAL COMPLICATION [None]
  - PROCEDURAL HYPERTENSION [None]
  - TACHYCARDIA [None]
